FAERS Safety Report 10073578 (Version 2)
Quarter: 2014Q2

REPORT INFORMATION
  Report Type: Spontaneous
  Country: US (occurrence: US)
  Receive Date: 20140411
  Receipt Date: 20140506
  Transmission Date: 20141212
  Serious: Yes (Hospitalization, Other)
  Sender: FDA-Public Use
  Company Number: US-FRI-1000066391

PATIENT
  Sex: Male
  Weight: 111.13 kg

DRUGS (1)
  1. SAPHRIS [Suspect]
     Dosage: 20MG
     Route: 060

REACTIONS (3)
  - Ventricular fibrillation [Unknown]
  - Bundle branch block left [Unknown]
  - Cardiac index decreased [Unknown]
